FAERS Safety Report 12540159 (Version 1)
Quarter: 2016Q3

REPORT INFORMATION
  Report Type: Spontaneous
  Country: FR (occurrence: FR)
  Receive Date: 20160708
  Receipt Date: 20160708
  Transmission Date: 20161109
  Serious: Yes (Hospitalization)
  Sender: FDA-Public Use
  Company Number: FR-PFIZER INC-2016323869

PATIENT
  Age: 73 Year
  Sex: Female

DRUGS (10)
  1. COZAAR [Suspect]
     Active Substance: LOSARTAN POTASSIUM
     Dosage: 50 MG, 2X/DAY
     Route: 048
  2. TAHOR [Concomitant]
     Active Substance: ATORVASTATIN CALCIUM
  3. DIFFU K [Concomitant]
     Active Substance: POTASSIUM CHLORIDE
  4. ESOMEPRAZOLE [Suspect]
     Active Substance: ESOMEPRAZOLE
     Dosage: 60 MG, DAILY
     Route: 048
     Dates: end: 20160607
  5. COZAAR [Suspect]
     Active Substance: LOSARTAN POTASSIUM
     Dosage: 150 MG, UNK
     Route: 048
     Dates: end: 20160607
  6. ZOPICLONE [Concomitant]
     Active Substance: ZOPICLONE
  7. LASILIX /00032601/ [Suspect]
     Active Substance: FUROSEMIDE
     Dosage: 20 MG, DAILY
     Route: 048
     Dates: end: 20160607
  8. SOTALEX [Concomitant]
     Active Substance: SOTALOL
     Dosage: 160 MG, UNK
  9. TEMESTA /00273201/ [Suspect]
     Active Substance: LORAZEPAM
     Dosage: 1 MG, 5 TIMES DAILY
     Route: 048
     Dates: end: 20160607
  10. ALDACTONE [Suspect]
     Active Substance: SPIRONOLACTONE
     Dosage: 25 MG, DAILY
     Route: 048
     Dates: end: 20160607

REACTIONS (4)
  - Hyponatraemia [Recovered/Resolved]
  - Insomnia [Unknown]
  - Weight decreased [Unknown]
  - Status epilepticus [Recovered/Resolved]

NARRATIVE: CASE EVENT DATE: 2016
